FAERS Safety Report 21687181 (Version 1)
Quarter: 2022Q4

REPORT INFORMATION
  Report Type: Spontaneous
  Country: CA (occurrence: CA)
  Receive Date: 20221206
  Receipt Date: 20221206
  Transmission Date: 20230113
  Serious: Yes (Hospitalization, Other)
  Sender: FDA-Public Use
  Company Number: CA-009507513-1802CAN005337

PATIENT
  Age: 42 Year
  Sex: Female

DRUGS (7)
  1. SINGULAIR [Suspect]
     Active Substance: MONTELUKAST SODIUM
     Indication: Asthma
     Dosage: 10 MILLIGRAM, PRN
     Route: 065
  2. ALBUTEROL SULFATE [Suspect]
     Active Substance: ALBUTEROL SULFATE
     Indication: Asthma
     Dosage: UNK
     Route: 065
  3. ALVESCO [Suspect]
     Active Substance: CICLESONIDE
     Indication: Asthma
     Dosage: DOSE:200 MG, FREQUENCY: 2 EVERY 1 DAY(S) BID, AEROSOL, METERED DOSE
     Route: 065
  4. FLUTICASONE PROPIONATE\SALMETEROL XINAFOATE [Suspect]
     Active Substance: FLUTICASONE PROPIONATE\SALMETEROL XINAFOATE
     Indication: Asthma
     Dosage: DOSE: 1 DOSAGE FORM, FREQUENCY: 2 EVERY 1 DAY(S) (BID) (1 PUFF(S), (BID), 500)
     Route: 065
  5. SPIRIVA [Suspect]
     Active Substance: TIOTROPIUM BROMIDE MONOHYDRATE
     Indication: Asthma
     Dosage: DOSE: 1 DOSAGE FORM (DF), FREQUENCY: 1 EVERY 1 DAY (QD) (1 PUFF(S), QD)
     Route: 065
  6. FLOVENT [Suspect]
     Active Substance: FLUTICASONE PROPIONATE
     Indication: Asthma
     Dosage: UNK; (PHARMACEUTICAL DOSAGE FORM: INHALER)
     Route: 065
  7. PREDNISONE [Concomitant]
     Active Substance: PREDNISONE
     Indication: Product used for unknown indication
     Dosage: UNK
     Route: 065

REACTIONS (5)
  - Asthma [Unknown]
  - Diabetes mellitus [Unknown]
  - Hyperglycaemia [Unknown]
  - Renal disorder [Unknown]
  - Hypertension [Unknown]

NARRATIVE: CASE EVENT DATE: 20160501
